FAERS Safety Report 5967733-7 (Version None)
Quarter: 2008Q4

REPORT INFORMATION
  Report Type: 
  Country: None (occurrence: None)
  Receive Date: 20081126
  Receipt Date: 20081118
  Transmission Date: 20090506
  Serious: Yes (Other)
  Sender: FDA-Public Use
  Company Number: FI-JNJFOC-20081102329

PATIENT
  Sex: Female
  Weight: 11 kg

DRUGS (6)
  1. REMICADE [Suspect]
     Dosage: TOTAL OF 4 INFUSIONS
     Route: 042
  2. REMICADE [Suspect]
     Route: 042
  3. REMICADE [Suspect]
     Route: 042
  4. REMICADE [Suspect]
     Indication: JUVENILE ARTHRITIS
     Route: 042
  5. METHOTREXATE [Concomitant]
     Indication: JUVENILE ARTHRITIS
     Route: 058
  6. FOLIC ACID [Concomitant]
     Indication: JUVENILE ARTHRITIS
     Route: 048

REACTIONS (2)
  - DERMATITIS BULLOUS [None]
  - IRITIS [None]
